FAERS Safety Report 7403194-9 (Version None)
Quarter: 2011Q2

REPORT INFORMATION
  Report Type: 
  Country: None (occurrence: None)
  Receive Date: 20110408
  Receipt Date: 20090619
  Transmission Date: 20111010
  Serious: Yes (Death, Other)
  Sender: FDA-Public Use
  Company Number: US-BAYER-200924118NA

PATIENT
  Age: 52 Year
  Sex: Female
  Weight: 49.887 kg

DRUGS (22)
  1. TRASYLOL [Suspect]
     Indication: AORTIC VALVE REPAIR
  2. METFORMIN [Concomitant]
     Indication: DIABETES MELLITUS
     Dosage: 850 MG, QD
     Route: 048
  3. SOLU-MEDROL [Concomitant]
     Dosage: 1 G, UNK
     Route: 042
     Dates: start: 20060217, end: 20060217
  4. MILRINONE [Concomitant]
     Dosage: 14.9CC UNK, 2 TIMES
     Route: 042
     Dates: start: 20060217, end: 20060217
  5. PROTAMINE SULFATE [Concomitant]
     Dosage: 550 MG, UNK
     Route: 042
     Dates: start: 20060217, end: 20060217
  6. LIPITOR [Concomitant]
     Dosage: 10 MG, QD
     Route: 048
  7. PAVULON [Concomitant]
     Dosage: 10 MG, UNK
     Route: 042
     Dates: start: 20060217, end: 20060217
  8. VASOPRESSIN [Concomitant]
  9. MIDAZOLAM [Concomitant]
     Dosage: UNK
     Route: 042
     Dates: start: 20060217, end: 20060217
  10. AMICAR [Concomitant]
     Dosage: 10 UNK, UNK
     Route: 042
     Dates: start: 20060217, end: 20060217
  11. ACTOS [Concomitant]
     Indication: DIABETES MELLITUS
     Dosage: 30 MG, QD
     Route: 048
     Dates: start: 20060215
  12. ETOMIDATE [Concomitant]
     Dosage: 10 MG, UNK
     Route: 042
     Dates: start: 20060217, end: 20060217
  13. TRASYLOL [Suspect]
     Indication: CORONARY ARTERY BYPASS
     Dosage: 5CC BALLOON PUMP
     Route: 042
     Dates: start: 20060217, end: 20060217
  14. ALTACE [Concomitant]
     Dosage: 2.5 MG, QD
     Route: 048
  15. DOBUTAMINE HCL [Concomitant]
     Dosage: UNK
     Route: 042
     Dates: start: 20060217, end: 20060217
  16. TRASYLOL [Suspect]
     Indication: INTRA-AORTIC BALLOON PLACEMENT
  17. LEVOPHED [Concomitant]
     Dosage: 65CC UNK, UNK
     Route: 042
     Dates: start: 20060217, end: 20060217
  18. DOPAMINE HCL [Concomitant]
     Dosage: 3 UNK,3MG/KG/MIN
     Route: 042
     Dates: start: 20060217, end: 20060217
  19. PROPOFOL [Concomitant]
     Dosage: 10CC UNK, UNK
     Route: 042
     Dates: start: 20060217, end: 20060217
  20. ACETYLSALICYLIC ACID SRT [Concomitant]
     Dosage: 81 MG, QD
     Route: 048
  21. HEPARIN [Concomitant]
     Dosage: 500 U, UNK
     Route: 042
     Dates: start: 20060217, end: 20060217
  22. MANNITOL [Concomitant]
     Dosage: 25 MG, PRIME
     Route: 042
     Dates: start: 20060217, end: 20060217

REACTIONS (13)
  - FEAR [None]
  - MULTI-ORGAN FAILURE [None]
  - INJURY [None]
  - DEATH [None]
  - RENAL FAILURE [None]
  - RENAL IMPAIRMENT [None]
  - EMOTIONAL DISTRESS [None]
  - STRESS [None]
  - ANHEDONIA [None]
  - UNEVALUABLE EVENT [None]
  - PAIN [None]
  - RENAL INJURY [None]
  - ANXIETY [None]
